FAERS Safety Report 4654982-3 (Version None)
Quarter: 2005Q2

REPORT INFORMATION
  Report Type: 
  Country: None (occurrence: None)
  Receive Date: 20050504
  Receipt Date: 20050412
  Transmission Date: 20051028
  Serious: Yes (Hospitalization)
  Sender: FDA-Public Use
  Company Number: MK200504-0115-2

PATIENT
  Age: 92 Year
  Sex: Female

DRUGS (1)
  1. OPTIRAY 320 [Suspect]
     Indication: COMPUTERISED TOMOGRAM
     Dosage: 100CC, IV, ONCE
     Route: 042
     Dates: start: 20050409, end: 20050409

REACTIONS (4)
  - EXTRAVASATION [None]
  - INJECTION SITE HAEMORRHAGE [None]
  - SKIN EXFOLIATION [None]
  - VESSEL PUNCTURE SITE DISCHARGE [None]
